FAERS Safety Report 17568310 (Version 1)
Quarter: 2020Q1

REPORT INFORMATION
  Report Type: Spontaneous
  Country: RU (occurrence: RU)
  Receive Date: 20200320
  Receipt Date: 20200320
  Transmission Date: 20200409
  Serious: Yes (Life-Threatening)
  Sender: FDA-Public Use
  Company Number: RU-ALLERGAN-2012338US

PATIENT
  Sex: Male

DRUGS (1)
  1. MEMANTINE HCL - BP [Suspect]
     Active Substance: MEMANTINE
     Indication: PRODUCT USED FOR UNKNOWN INDICATION
     Dosage: 15 TABLETS (15 DOSAGE FORMS,1 IN 1 D)
     Route: 048
     Dates: start: 20200224, end: 20200224

REACTIONS (5)
  - Tremor [Recovered/Resolved]
  - Intentional overdose [Unknown]
  - Hallucination [Recovered/Resolved]
  - Disorganised speech [Recovered/Resolved]
  - Suicide attempt [Recovered/Resolved]

NARRATIVE: CASE EVENT DATE: 2020
